FAERS Safety Report 5241239-5 (Version None)
Quarter: 2007Q1

REPORT INFORMATION
  Report Type: 
  Country: None (occurrence: None)
  Receive Date: 20070212
  Receipt Date: 20070212
  Transmission Date: 20070707
  Serious: Yes (Other)
  Sender: FDA-Public Use
  Company Number: None

PATIENT
  Age: 45 Year
  Sex: Female
  Weight: 58.9676 kg

DRUGS (1)
  1. ZOLOFT [Suspect]
     Indication: POSTPARTUM DEPRESSION
     Dosage: CAME OFF IN 4-6WEEKS
     Dates: start: 19961001, end: 20060610

REACTIONS (8)
  - DIZZINESS [None]
  - DRUG WITHDRAWAL SYNDROME [None]
  - FEELING ABNORMAL [None]
  - GASTRIC DISORDER [None]
  - OCULAR DISCOMFORT [None]
  - TINNITUS [None]
  - VISION BLURRED [None]
  - WEIGHT DECREASED [None]
